FAERS Safety Report 6119095-2 (Version None)
Quarter: 2009Q1

REPORT INFORMATION
  Report Type: 
  Country: None (occurrence: None)
  Receive Date: 20090316
  Receipt Date: 20081107
  Transmission Date: 20090719
  Serious: No
  Sender: FDA-Public Use
  Company Number: US-BAYER-200814336BCC

PATIENT
  Age: 9 Year
  Sex: Female
  Weight: 27 kg

DRUGS (4)
  1. RID MOUSSE [Suspect]
     Indication: LICE INFESTATION
     Route: 061
     Dates: start: 20081029
  2. RID SHAMPOO [Suspect]
     Indication: LICE INFESTATION
     Route: 061
     Dates: start: 20081101
  3. RID EGG + LICE COMB OUT GEL [Suspect]
  4. RID HOME CONTROL SPRAY [Concomitant]

REACTIONS (2)
  - DRY SKIN [None]
  - LICE INFESTATION [None]
